FAERS Safety Report 20045029 (Version 1)
Quarter: 2021Q4

REPORT INFORMATION
  Report Type: Spontaneous
  Country: CA (occurrence: CA)
  Receive Date: 20211108
  Receipt Date: 20211108
  Transmission Date: 20220304
  Serious: Yes (Disabling)
  Sender: FDA-Public Use
  Company Number: CA-TEVA-2021-CA-1973187

PATIENT
  Age: 43 Year
  Sex: Male
  Weight: 72 kg

DRUGS (1)
  1. CIPROFLOXACIN [Suspect]
     Active Substance: CIPROFLOXACIN
     Indication: Urinary tract infection
     Dosage: 24 DOSAGE FORMS DAILY;
     Route: 048

REACTIONS (4)
  - Arthralgia [Recovering/Resolving]
  - Joint noise [Recovering/Resolving]
  - Neuralgia [Recovering/Resolving]
  - Pain in extremity [Recovering/Resolving]
